FAERS Safety Report 4773285-X (Version None)
Quarter: 2005Q3

REPORT INFORMATION
  Report Type: 
  Country: None (occurrence: None)
  Receive Date: 20050920
  Receipt Date: 20050912
  Transmission Date: 20060218
  Serious: Yes (Hospitalization)
  Sender: FDA-Public Use
  Company Number: ES-BOEHRINGER INGELHEIM PHARMACEUTICALS, INC.-2005-DE-03669GD

PATIENT
  Age: 36 Year

DRUGS (4)
  1. NEVIRAPINE [Suspect]
     Indication: HIV INFECTION
     Dates: start: 19990501
  2. ABACAVIR [Suspect]
     Indication: HIV INFECTION
     Dates: start: 20031101
  3. DIDANOSINE [Suspect]
     Indication: HIV INFECTION
     Dates: start: 19990501
  4. STAVUDINE [Suspect]
     Indication: HIV INFECTION
     Dates: start: 19990501, end: 20031101

REACTIONS (7)
  - ARTHRALGIA [None]
  - COUGH [None]
  - MALAISE [None]
  - MYALGIA [None]
  - PARTIAL LIPODYSTROPHY [None]
  - PYREXIA [None]
  - TOXIC EPIDERMAL NECROLYSIS [None]
